FAERS Safety Report 6589011-8 (Version None)
Quarter: 2010Q1

REPORT INFORMATION
  Report Type: 
  Country: None (occurrence: None)
  Receive Date: 20100218
  Receipt Date: 20100203
  Transmission Date: 20100710
  Serious: Yes (Hospitalization)
  Sender: FDA-Public Use
  Company Number: JP-GENENTECH-298036

PATIENT
  Sex: Male
  Weight: 72 kg

DRUGS (13)
  1. OMALIZUMAB [Suspect]
     Indication: ASTHMA
     Dosage: 150 MG, 1/MONTH
     Dates: start: 20090709, end: 20091203
  2. QVAR 40 [Concomitant]
     Indication: DRUG USE FOR UNKNOWN INDICATION
     Dosage: UNK
     Dates: start: 20090129
  3. SEREVENT [Concomitant]
     Indication: DRUG USE FOR UNKNOWN INDICATION
     Dosage: UNK
     Dates: start: 20090129
  4. SPIRIVA [Concomitant]
     Indication: DRUG USE FOR UNKNOWN INDICATION
     Dosage: UNK
     Dates: start: 20090129
  5. PREDONINE [Concomitant]
     Indication: DRUG USE FOR UNKNOWN INDICATION
  6. GASTER [Concomitant]
     Indication: DRUG USE FOR UNKNOWN INDICATION
     Dosage: UNK
     Dates: start: 20070926
  7. MEVALOTIN [Concomitant]
     Indication: DRUG USE FOR UNKNOWN INDICATION
     Dosage: UNK
     Dates: start: 20070926
  8. METFORMIN HYDROCHLORIDE [Concomitant]
     Indication: DRUG USE FOR UNKNOWN INDICATION
     Dosage: UNK
     Dates: start: 20070926
  9. NATEGLINIDE [Concomitant]
     Indication: DRUG USE FOR UNKNOWN INDICATION
     Dosage: UNK
     Dates: start: 20070926
  10. MEIACT [Concomitant]
     Indication: DRUG USE FOR UNKNOWN INDICATION
     Dosage: UNK
     Dates: start: 20091126, end: 20091128
  11. SOLANTAL [Concomitant]
     Indication: DRUG USE FOR UNKNOWN INDICATION
     Dosage: UNK
     Dates: start: 20091126, end: 20100117
  12. HERBAL DRUG NOS [Concomitant]
     Indication: DRUG USE FOR UNKNOWN INDICATION
     Dosage: UNK
     Dates: start: 20091203, end: 20091217
  13. RINDERON [Concomitant]
     Indication: DRUG USE FOR UNKNOWN INDICATION
     Dosage: UNK
     Dates: start: 20090717, end: 20090717

REACTIONS (2)
  - DERMATITIS ALLERGIC [None]
  - EOSINOPHILIA [None]
